FAERS Safety Report 24583737 (Version 1)
Quarter: 2024Q4

REPORT INFORMATION
  Report Type: Report from Study
  Country: US (occurrence: US)
  Receive Date: 20241106
  Receipt Date: 20241106
  Transmission Date: 20250114
  Serious: Yes (Hospitalization, Other)
  Sender: ABBVIE
  Company Number: US-ABBVIE-5987190

PATIENT
  Age: 60 Year
  Sex: Female

DRUGS (1)
  1. HUMIRA [Suspect]
     Active Substance: ADALIMUMAB
     Indication: Rheumatoid arthritis
     Dosage: CITRATE FREE
     Route: 058
     Dates: start: 20240315

REACTIONS (5)
  - Transient ischaemic attack [Recovering/Resolving]
  - Pneumonia [Recovering/Resolving]
  - Cardiac failure [Unknown]
  - Hypoaesthesia [Unknown]
  - Cough [Unknown]

NARRATIVE: CASE EVENT DATE: 20240101
